FAERS Safety Report 5621982-6 (Version None)
Quarter: 2008Q1

REPORT INFORMATION
  Report Type: 
  Country: None (occurrence: None)
  Receive Date: 20080211
  Receipt Date: 20080206
  Transmission Date: 20080703
  Serious: Yes (Other)
  Sender: FDA-Public Use
  Company Number: B0507256A

PATIENT
  Age: 61 Year
  Sex: Male

DRUGS (3)
  1. AMOXICILLIN TRIHYDRATE [Suspect]
     Dosage: 1500MG PER DAY
     Route: 048
     Dates: start: 20080116, end: 20080122
  2. CLARITHROMYCIN [Suspect]
     Indication: DRUG USE FOR UNKNOWN INDICATION
     Dosage: 400MG PER DAY
     Route: 048
     Dates: start: 20080116, end: 20080122
  3. PARIET [Suspect]
     Indication: DRUG USE FOR UNKNOWN INDICATION
     Dosage: 40MG PER DAY
     Route: 048
     Dates: start: 20080116, end: 20080122

REACTIONS (3)
  - OCULOMUCOCUTANEOUS SYNDROME [None]
  - RASH [None]
  - RASH GENERALISED [None]
